FAERS Safety Report 7280366-8 (Version None)
Quarter: 2011Q1

REPORT INFORMATION
  Report Type: 
  Country: None (occurrence: None)
  Receive Date: 20110208
  Receipt Date: 20110201
  Transmission Date: 20110831
  Serious: Yes (Death, Life-Threatening, Hospitalization, Other)
  Sender: FDA-Public Use
  Company Number: DE-SANOFI-AVENTIS-2011SA003796

PATIENT
  Age: 67 Year
  Sex: Male
  Weight: 83 kg

DRUGS (17)
  1. FILGRASTIM [Concomitant]
     Dosage: DOSE:30 MEGAUNIT(S)
     Dates: start: 20110117
  2. NEUPOGEN [Concomitant]
     Dates: start: 20110117
  3. STEROFUNDIN [Concomitant]
  4. RANITIDINE [Concomitant]
     Indication: PREMEDICATION
     Dates: start: 20110111
  5. TAVANIC [Concomitant]
     Dates: start: 20110111, end: 20110119
  6. PANTOZOL [Concomitant]
     Dates: start: 20110117
  7. DEXAMETHASONE [Concomitant]
  8. OSMOFUNDIN [Concomitant]
  9. CIPROFLOXACIN [Concomitant]
     Dates: start: 20110117, end: 20110118
  10. LASIX [Concomitant]
  11. CISPLATIN [Suspect]
     Indication: HYPOPHARYNGEAL CANCER
     Route: 041
     Dates: start: 20110111, end: 20110111
  12. DEXAMETHASONE [Concomitant]
     Indication: PREMEDICATION
     Dates: start: 20110111
  13. DOCETAXEL [Suspect]
     Indication: HYPOPHARYNGEAL CANCER
     Route: 041
     Dates: start: 20110111, end: 20110111
  14. DIMETINDENE [Concomitant]
     Indication: PREMEDICATION
     Dates: start: 20110111
  15. ONDANSETRON [Concomitant]
     Indication: ANTIEMETIC SUPPORTIVE CARE
  16. METOCLOPRAMIDE [Concomitant]
     Indication: ANTIEMETIC SUPPORTIVE CARE
  17. AMPICILLIN [Concomitant]
     Dates: start: 20110117, end: 20110118

REACTIONS (5)
  - RESPIRATORY FAILURE [None]
  - DIARRHOEA [None]
  - MULTI-ORGAN FAILURE [None]
  - SEPSIS [None]
  - LEUKOPENIA [None]
